FAERS Safety Report 16353723 (Version 5)
Quarter: 2019Q3

REPORT INFORMATION
  Report Type: Spontaneous
  Country: US (occurrence: US)
  Receive Date: 20190524
  Receipt Date: 20190927
  Transmission Date: 20191004
  Serious: Yes (Death, Hospitalization)
  Sender: FDA-Public Use
  Company Number: US-LEXICON PHARMACEUTICALS, INC-19-1606-00545

PATIENT
  Sex: Male

DRUGS (2)
  1. LANREOTIDE INJ [Concomitant]
  2. TELOTRISTAT ETHYL [Suspect]
     Active Substance: TELOTRISTAT ETHYL
     Indication: CARCINOID TUMOUR OF THE STOMACH
     Route: 048
     Dates: start: 20190504

REACTIONS (4)
  - Fluid retention [Not Recovered/Not Resolved]
  - Death [Fatal]
  - Product dose omission [Not Recovered/Not Resolved]
  - Cardiac failure congestive [Not Recovered/Not Resolved]
